FAERS Safety Report 21734868 (Version 2)
Quarter: 2022Q4

REPORT INFORMATION
  Report Type: Spontaneous
  Country: CN (occurrence: CN)
  Receive Date: 20221215
  Receipt Date: 20221221
  Transmission Date: 20230113
  Serious: Yes (Death)
  Sender: FDA-Public Use
  Company Number: CN-002147023-NVSC2022CN290606

PATIENT
  Age: 65 Year
  Sex: Male

DRUGS (5)
  1. IMATINIB MESYLATE [Suspect]
     Active Substance: IMATINIB MESYLATE
     Indication: Chronic myeloid leukaemia
     Dosage: 400 MG, QD
     Route: 065
     Dates: start: 2016
  2. NILOTINIB [Suspect]
     Active Substance: NILOTINIB
     Indication: Chronic myeloid leukaemia
     Dosage: 300 MG, BID
     Route: 065
  3. HYDROXYUREA [Suspect]
     Active Substance: HYDROXYUREA
     Indication: Chronic myeloid leukaemia
     Dosage: 2.5 G, QD
     Route: 065
     Dates: start: 2001
  4. DASATINIB [Suspect]
     Active Substance: DASATINIB
     Indication: Chronic myeloid leukaemia
     Dosage: 100 MG, QD
     Route: 065
     Dates: start: 201912
  5. DASATINIB [Suspect]
     Active Substance: DASATINIB
     Dosage: 25 MG, QD
     Route: 065

REACTIONS (4)
  - Squamous cell carcinoma of skin [Fatal]
  - Second primary malignancy [Fatal]
  - Remission not achieved [Unknown]
  - Therapy non-responder [Unknown]
